FAERS Safety Report 11686749 (Version 1)
Quarter: 2015Q4

REPORT INFORMATION
  Report Type: Spontaneous
  Country: US (occurrence: US)
  Receive Date: 20151030
  Receipt Date: 20151030
  Transmission Date: 20160304
  Serious: No
  Sender: FDA-Public Use
  Company Number: US-PFIZER INC-2015369603

PATIENT
  Age: 55 Year
  Sex: Female

DRUGS (1)
  1. XELJANZ [Suspect]
     Active Substance: TOFACITINIB CITRATE
     Indication: HUNTINGTON^S DISEASE
     Dosage: 5 MG, 2X/DAY
     Route: 048
     Dates: start: 201501, end: 201506

REACTIONS (2)
  - Feeling abnormal [Unknown]
  - Product use issue [Unknown]
